FAERS Safety Report 15060645 (Version 1)
Quarter: 2018Q2

REPORT INFORMATION
  Report Type: Spontaneous
  Country: US (occurrence: US)
  Receive Date: 20180625
  Receipt Date: 20180625
  Transmission Date: 20180711
  Serious: Yes (Other)
  Sender: FDA-Public Use
  Company Number: US-OTSUKA-12899126

PATIENT
  Age: 9 Year
  Sex: Male

DRUGS (1)
  1. ABILIFY [Suspect]
     Active Substance: ARIPIPRAZOLE
     Dosage: UNK
     Dates: start: 200304

REACTIONS (5)
  - Generalised tonic-clonic seizure [Recovered/Resolved]
  - Activated partial thromboplastin time prolonged [Unknown]
  - Aggression [Recovered/Resolved]
  - Contusion [Unknown]
  - Back pain [Unknown]

NARRATIVE: CASE EVENT DATE: 2003
